FAERS Safety Report 5113664-4 (Version None)
Quarter: 2006Q3

REPORT INFORMATION
  Report Type: 
  Country: None (occurrence: None)
  Receive Date: 20060925
  Receipt Date: 20060818
  Transmission Date: 20061208
  Serious: Yes (Life-Threatening, Hospitalization)
  Sender: FDA-Public Use
  Company Number: ZA-BRISTOL-MYERS SQUIBB COMPANY-13481965

PATIENT
  Age: 58 Year
  Sex: Male
  Weight: 67 kg

DRUGS (7)
  1. CISPLATIN [Suspect]
     Indication: NON-SMALL CELL LUNG CANCER
     Dosage: INITIAL DOSE 17MAY06
     Route: 042
     Dates: start: 20060719, end: 20060719
  2. PF-3512676 [Suspect]
     Indication: NON-SMALL CELL LUNG CANCER
     Dosage: INITIAL DOSE: 24MAY06
     Route: 058
     Dates: start: 20060621, end: 20060621
  3. GEMCITABINE [Suspect]
     Indication: NON-SMALL CELL LUNG CANCER
     Dosage: INITIAL DOSE 17MAY06
     Route: 042
     Dates: start: 20060719, end: 20060719
  4. MAGNESIUM SULFATE [Concomitant]
     Dates: start: 20060719
  5. ACCURETIC [Concomitant]
     Route: 048
     Dates: start: 20040101, end: 20060808
  6. METOCLOPRAMIDE HCL [Concomitant]
     Route: 048
     Dates: start: 20060517
  7. BENYLIN EXPECTORANT [Concomitant]
     Route: 048
     Dates: start: 20060707

REACTIONS (1)
  - PULMONARY EMBOLISM [None]
